FAERS Safety Report 16711216 (Version 2)
Quarter: 2019Q3

REPORT INFORMATION
  Report Type: Spontaneous
  Country: US (occurrence: US)
  Receive Date: 20190816
  Receipt Date: 20190909
  Transmission Date: 20191004
  Serious: No
  Sender: FDA-Public Use
  Company Number: US-BRISTOL-MYERS SQUIBB COMPANY-BMS-2019-080229

PATIENT
  Sex: Female
  Weight: 79.37 kg

DRUGS (2)
  1. CHLOR-TRIMETON [Concomitant]
     Active Substance: CHLORPHENIRAMINE MALEATE
     Indication: SINUS DISORDER
     Route: 065
  2. ELIQUIS [Suspect]
     Active Substance: APIXABAN
     Indication: DEEP VEIN THROMBOSIS
     Dosage: 5 MILLIGRAM, BID
     Route: 048
     Dates: start: 20190612

REACTIONS (5)
  - Back disorder [Unknown]
  - Ligament sprain [Unknown]
  - Anxiety [Unknown]
  - Pain in extremity [Unknown]
  - Insomnia [Unknown]
